FAERS Safety Report 5837774-9 (Version None)
Quarter: 2008Q3

REPORT INFORMATION
  Report Type: 
  Country: None (occurrence: None)
  Receive Date: 20080807
  Receipt Date: 20080723
  Transmission Date: 20090109
  Serious: Yes (Other)
  Sender: FDA-Public Use
  Company Number: SE-GENENTECH-265758

PATIENT
  Age: 37 Year
  Sex: Female

DRUGS (14)
  1. MABTHERA [Suspect]
     Indication: NON-HODGKIN'S LYMPHOMA
     Dosage: 375 MG/M2, 1/WEEK
     Dates: start: 20000101
  2. ACETAMINOPHEN [Concomitant]
     Indication: PROPHYLAXIS
     Dosage: UNK
     Dates: start: 20000101
  3. CLEMASTIN [Concomitant]
     Indication: PROPHYLAXIS
     Dosage: UNK
     Dates: start: 20000101
  4. CYCLOPHOSPHAMIDE [Concomitant]
     Indication: LYMPHOMA
     Dosage: UNK
     Dates: start: 20010101
  5. DOXORUBICIN HCL [Concomitant]
     Indication: LYMPHOMA
     Dosage: UNK
     Dates: start: 20010101
  6. VINCRISTINE [Concomitant]
     Indication: LYMPHOMA
     Dosage: UNK
  7. PREDNISONE TAB [Concomitant]
     Indication: LYMPHOMA
     Dosage: UNK
     Dates: start: 20010101
  8. MITOGUAZONE DIHYDROCHLORIDE [Concomitant]
     Indication: LYMPHOMA
     Dosage: UNK
     Dates: start: 20010101
  9. IFOSFAMIDE [Concomitant]
     Indication: LYMPHOMA
     Dosage: UNK
     Dates: start: 20010101
  10. METHOTREXATE [Concomitant]
     Indication: LYMPHOMA
     Dosage: UNK
     Dates: start: 20010101
  11. ETOPOSIDE [Concomitant]
     Indication: LYMPHOMA
     Dosage: UNK
     Dates: start: 20010101
  12. CISPLATIN [Concomitant]
     Indication: LYMPHOMA
     Dosage: UNK
     Dates: start: 20010101
  13. CYTARABINE [Concomitant]
     Indication: LYMPHOMA
     Dosage: UNK
     Dates: start: 20010101
  14. DEXAMETHASONE [Concomitant]
     Indication: LYMPHOMA
     Dosage: UNK
     Dates: start: 20010101

REACTIONS (2)
  - ANAEMIA [None]
  - LEUKOCYTOSIS [None]
